FAERS Safety Report 13287497 (Version 1)
Quarter: 2017Q1

REPORT INFORMATION
  Report Type: Spontaneous
  Country: US (occurrence: US)
  Receive Date: 20170302
  Receipt Date: 20170302
  Transmission Date: 20170428
  Serious: Yes (Life-Threatening)
  Sender: FDA-Public Use
  Company Number: US-ALKERMES INC.-ALK-2017-000750

PATIENT
  Age: 32 Year
  Sex: Male

DRUGS (1)
  1. VIVITROL [Suspect]
     Active Substance: NALTREXONE
     Indication: ALCOHOLISM
     Dosage: 380 MG, QMO
     Route: 030

REACTIONS (3)
  - Apparent death [Recovered/Resolved]
  - Alcoholism [Recovered/Resolved]
  - Imprisonment [Not Recovered/Not Resolved]

NARRATIVE: CASE EVENT DATE: 2016
